FAERS Safety Report 4722393-8 (Version None)
Quarter: 2005Q3

REPORT INFORMATION
  Report Type: 
  Country: None (occurrence: None)
  Receive Date: 20050722
  Receipt Date: 20050330
  Transmission Date: 20060218
  Serious: No
  Sender: FDA-Public Use
  Company Number: US-GLAXOSMITHKLINE-A0551923A

PATIENT
  Sex: Female

DRUGS (4)
  1. AVANDIA [Suspect]
     Dosage: 4MG PER DAY
     Route: 048
     Dates: start: 20050329
  2. PRINIVIL [Concomitant]
  3. ADVAIR DISKUS 100/50 [Concomitant]
  4. VITAMIN [Concomitant]

REACTIONS (1)
  - FATIGUE [None]
